FAERS Safety Report 17333595 (Version 3)
Quarter: 2020Q1

REPORT INFORMATION
  Report Type: Report from Study
  Country: IE (occurrence: IE)
  Receive Date: 20200128
  Receipt Date: 20200226
  Transmission Date: 20200409
  Serious: Yes (Hospitalization)
  Sender: FDA-Public Use
  Company Number: IE-PFIZER INC-2020038349

PATIENT
  Weight: 39.82 kg

DRUGS (29)
  1. SEVREDOL [Concomitant]
     Active Substance: MORPHINE
     Indication: ANALGESIC THERAPY
     Dosage: 10 MG, AS NEEDED
     Dates: start: 20190319, end: 20190319
  2. AMILORIDE [Concomitant]
     Active Substance: AMILORIDE
     Indication: OEDEMA
     Dosage: 8 MG, 2X/DAY
     Dates: start: 20190324
  3. COTRIMOXAZOLE [Concomitant]
     Active Substance: SULFAMETHOXAZOLE\TRIMETHOPRIM
     Indication: INFECTION
     Dosage: 480 MG, 2X/DAY
     Route: 042
     Dates: start: 20190316, end: 20190317
  4. CLARITHROMYCIN. [Concomitant]
     Active Substance: CLARITHROMYCIN
     Indication: INFECTION
     Dosage: 300 MG, 2X/DAY
     Dates: start: 20190521, end: 20190521
  5. TAZOCIN [Concomitant]
     Active Substance: PIPERACILLIN SODIUM\TAZOBACTAM SODIUM
     Indication: INFECTION
     Dosage: 3.5 G, DAILY
     Dates: start: 20190314, end: 20190319
  6. COTRIMOXAZOLE [Concomitant]
     Active Substance: SULFAMETHOXAZOLE\TRIMETHOPRIM
     Dosage: 960 MG, 1X/DAY
     Route: 042
     Dates: start: 20190321, end: 20190321
  7. COTRIMOXAZOLE [Concomitant]
     Active Substance: SULFAMETHOXAZOLE\TRIMETHOPRIM
     Dosage: 960 MG, DAILY
     Route: 048
     Dates: start: 20190323, end: 20190325
  8. MEROPENEM. [Concomitant]
     Active Substance: MEROPENEM
     Indication: INFECTION
     Dosage: 800 MG, DAILY
     Dates: start: 20190319
  9. SALBUTAMOL [Concomitant]
     Active Substance: ALBUTEROL
     Indication: RESPIRATORY THERAPY
     Dosage: 2.5 MG, DAILY
     Dates: start: 20190316, end: 20190316
  10. AMPHOTERICIN B, LIPOSOME [Concomitant]
     Active Substance: AMPHOTERICIN B
     Indication: ANTIFUNGAL TREATMENT
     Dosage: 120 MG, 1X/DAY
     Dates: start: 20190320
  11. TEICOPLANIN [Concomitant]
     Active Substance: TEICOPLANIN
     Indication: INFECTION
     Dosage: 400 MG, 2X/DAY
     Dates: start: 20190317, end: 20190318
  12. ONDANSETRON [Concomitant]
     Active Substance: ONDANSETRON
     Indication: ANTIEMETIC SUPPORTIVE CARE
     Dosage: 4 MG, 3X/DAY
     Dates: start: 20190316
  13. CYCLIZINE [Concomitant]
     Active Substance: CYCLIZINE
     Indication: ANTIEMETIC SUPPORTIVE CARE
     Dosage: 25 MG, 3X/DAY
     Dates: start: 20190317
  14. HYDROCORTISONE. [Concomitant]
     Active Substance: HYDROCORTISONE
     Indication: STEROID THERAPY
     Dosage: 100 MG, AS NEEDED
     Dates: start: 20190320, end: 20190320
  15. OSELTAMIVIR [Concomitant]
     Active Substance: OSELTAMIVIR
     Indication: PYREXIA
     Dosage: 60 MG, 2X/DAY
     Dates: start: 20190321, end: 20190322
  16. MITOXANTRONE HCL [Suspect]
     Active Substance: MITOXANTRONE HYDROCHLORIDE
     Indication: ACUTE MYELOID LEUKAEMIA
     Dosage: 12 MG/M2, 1X/DAY
     Route: 042
     Dates: start: 20190315, end: 20190318
  17. GENTAMYCIN [Concomitant]
     Active Substance: GENTAMICIN
     Indication: INFECTION
     Dosage: 280 MG, CYCLIC (EVERY 21 HRS)
     Dates: start: 20190315, end: 20190316
  18. AMBISONE [Concomitant]
     Active Substance: AMPHOTERICIN B
     Indication: ANTIFUNGAL PROPHYLAXIS
     Dosage: 40 MG, 1X/DAY
     Dates: start: 20190318, end: 20190318
  19. ESOMEPRAZOLE. [Concomitant]
     Active Substance: ESOMEPRAZOLE MAGNESIUM
     Indication: GASTROOESOPHAGEAL REFLUX DISEASE
     Dosage: 10 MG, 1X/DAY
     Dates: start: 20190316, end: 20190324
  20. PARACETAMOL [Concomitant]
     Active Substance: ACETAMINOPHEN
     Indication: ANALGESIC THERAPY
     Dosage: 600 MG, DAILY
     Dates: start: 20190315
  21. VITAMIN K [Concomitant]
     Active Substance: PHYTONADIONE
     Indication: HYPOKALAEMIA
     Dosage: 10 MG, 1X/DAY
     Route: 042
     Dates: start: 20190315
  22. VORICONAZOLE. [Concomitant]
     Active Substance: VORICONAZOLE
     Indication: ANTIFUNGAL PROPHYLAXIS
     Dosage: 350 MG, 2X/DAY
     Dates: start: 20190315, end: 20190316
  23. GEMTUZUMAB OZOGAMICIN [Suspect]
     Active Substance: GEMTUZUMAB OZOGAMICIN
     Indication: ACUTE MYELOID LEUKAEMIA
     Dosage: 3.8 MG, UNK
     Route: 042
     Dates: start: 20190319, end: 20190321
  24. CHLORPHENAMINE [Concomitant]
     Active Substance: CHLORPHENIRAMINE MALEATE
     Indication: ANTIALLERGIC THERAPY
     Dosage: 4 MG, AS NEEDED
     Dates: start: 20190320, end: 20190323
  25. GENTAMYCIN [Concomitant]
     Active Substance: GENTAMICIN
     Dosage: 280 MG, 1X/DAY
     Dates: start: 20190320, end: 20190321
  26. FUROSEMIDE. [Concomitant]
     Active Substance: FUROSEMIDE
     Indication: OEDEMA
     Dosage: 20 MG, 2X/DAY
     Dates: start: 20190315, end: 20190321
  27. VANCOMYCIN [Concomitant]
     Active Substance: VANCOMYCIN
     Indication: INFECTION
     Dosage: 760 MG, CYCLIC (EVERY HOUR)
     Dates: start: 20190320, end: 20190324
  28. PHYTOMENADION [Concomitant]
     Indication: VITAMIN SUPPLEMENTATION
     Dosage: 10 MG, 1X/DAY
     Dates: start: 20190321, end: 20190324
  29. LANSOPRAZOLE. [Concomitant]
     Active Substance: LANSOPRAZOLE
     Indication: GASTROOESOPHAGEAL REFLUX DISEASE
     Dosage: 15 MG, 1X/DAY
     Dates: start: 20190324

REACTIONS (1)
  - Febrile neutropenia [Recovered/Resolved]

NARRATIVE: CASE EVENT DATE: 20190328
